FAERS Safety Report 17445443 (Version 1)
Quarter: 2020Q1

REPORT INFORMATION
  Report Type: Report from Study
  Country: GB (occurrence: GB)
  Receive Date: 20200221
  Receipt Date: 20200221
  Transmission Date: 20200409
  Serious: Yes (Other)
  Sender: FDA-Public Use
  Company Number: NVSC2020GB044038

PATIENT
  Sex: Male

DRUGS (1)
  1. ERELZI [Suspect]
     Active Substance: ETANERCEPT-SZZS
     Indication: RHEUMATOID ARTHRITIS
     Dosage: 1 DF, QW
     Route: 058
     Dates: start: 20190725

REACTIONS (7)
  - Eye disorder [Unknown]
  - Drooling [Unknown]
  - Dry mouth [Unknown]
  - Nerve injury [Unknown]
  - Facial paralysis [Unknown]
  - Product dose omission [Unknown]
  - Ageusia [Unknown]
